FAERS Safety Report 4861393-4 (Version None)
Quarter: 2005Q4

REPORT INFORMATION
  Report Type: 
  Country: None (occurrence: None)
  Receive Date: 20051220
  Receipt Date: 20051209
  Transmission Date: 20060501
  Serious: Yes (Other)
  Sender: FDA-Public Use
  Company Number: US-ROCHE-428408

PATIENT
  Age: 28 Year
  Sex: Female

DRUGS (1)
  1. DIAZEPAM [Suspect]
     Indication: DRUG USE FOR UNKNOWN INDICATION
     Route: 048

REACTIONS (4)
  - AGGRESSION [None]
  - EXCESSIVE SEXUAL FANTASIES [None]
  - PHYSICAL ABUSE [None]
  - SELF INJURIOUS BEHAVIOUR [None]
